FAERS Safety Report 10076901 (Version 1)
Quarter: 2014Q2

REPORT INFORMATION
  Report Type: Spontaneous
  Country: US (occurrence: US)
  Receive Date: 20140414
  Receipt Date: 20140414
  Transmission Date: 20141212
  Serious: Yes (Other)
  Sender: FDA-Public Use
  Company Number: US-GLAXOSMITHKLINE-A1068471A

PATIENT
  Age: 21 Year
  Sex: Female

DRUGS (2)
  1. LAMOTRIGINE [Suspect]
     Indication: EPILEPSY
     Route: 048
     Dates: start: 2009, end: 2009
  2. LAMICTAL [Concomitant]

REACTIONS (3)
  - Petit mal epilepsy [Recovered/Resolved]
  - Nervous system disorder [Recovered/Resolved]
  - Drug ineffective [Unknown]
